FAERS Safety Report 15889099 (Version 1)
Quarter: 2019Q1

REPORT INFORMATION
  Report Type: Spontaneous
  Country: US (occurrence: US)
  Receive Date: 20190129
  Receipt Date: 20190129
  Transmission Date: 20190417
  Serious: Yes (Hospitalization)
  Sender: FDA-Public Use
  Company Number: None

PATIENT
  Age: 66 Year
  Sex: Male

DRUGS (10)
  1. CALCITROL [Concomitant]
     Active Substance: CALCITRIOL
  2. PREDNISONE. [Concomitant]
     Active Substance: PREDNISONE
  3. MYCOPHENOLATE [Suspect]
     Active Substance: MYCOPHENOLIC ACID
     Indication: KIDNEY TRANSPLANT REJECTION
     Route: 048
     Dates: start: 20170130
  4. WARFARIN [Concomitant]
     Active Substance: WARFARIN
  5. TACROLIMUS. [Suspect]
     Active Substance: TACROLIMUS
     Indication: KIDNEY TRANSPLANT REJECTION
     Route: 048
     Dates: start: 20170130
  6. PANTOPRAZOLE [Concomitant]
     Active Substance: PANTOPRAZOLE
  7. FLUDROCORT [Concomitant]
  8. GENTAMICIN OINTMENT [Concomitant]
  9. LEVOTHYROXINE. [Concomitant]
     Active Substance: LEVOTHYROXINE
  10. SODIUM CITRATE SOLUTION [Concomitant]

REACTIONS (2)
  - Squamous cell carcinoma [None]
  - Ear neoplasm malignant [None]

NARRATIVE: CASE EVENT DATE: 20190125
